FAERS Safety Report 6965825-7 (Version None)
Quarter: 2010Q3

REPORT INFORMATION
  Report Type: 
  Country: None (occurrence: None)
  Receive Date: 20100823
  Receipt Date: 20100616
  Transmission Date: 20110219
  Serious: No
  Sender: FDA-Public Use
  Company Number: 014429

PATIENT
  Sex: Male

DRUGS (3)
  1. CIMZIA [Suspect]
     Dosage: (DOSE SUBCUTANEOUS)
     Route: 058
     Dates: start: 20100201
  2. PREDNISONE [Concomitant]
  3. ANTIBIOTICS [Concomitant]

REACTIONS (4)
  - COUGH [None]
  - DIARRHOEA [None]
  - DRUG INEFFECTIVE [None]
  - LOWER RESPIRATORY TRACT INFECTION [None]
